FAERS Safety Report 4471815-9 (Version None)
Quarter: 2004Q4

REPORT INFORMATION
  Report Type: 
  Country: None (occurrence: None)
  Receive Date: 20041006
  Receipt Date: 20040927
  Transmission Date: 20050328
  Serious: Yes (Other)
  Sender: FDA-Public Use
  Company Number: 2004235577US

PATIENT
  Age: 33 Year
  Sex: Female
  Weight: 51.2 kg

DRUGS (1)
  1. DEPO-PROVERA [Suspect]
     Indication: CONTRACEPTION
     Dosage: 150 MG, FIRST INJECTION, INTRAMUSCULAR
     Route: 030
     Dates: start: 20040821, end: 20040821

REACTIONS (3)
  - HEADACHE [None]
  - HYPERTENSION [None]
  - RENAL DISORDER [None]
